FAERS Safety Report 7574596-5 (Version None)
Quarter: 2011Q2

REPORT INFORMATION
  Report Type: 
  Country: None (occurrence: None)
  Receive Date: 20110627
  Receipt Date: 20110609
  Transmission Date: 20111010
  Serious: Yes (Other)
  Sender: FDA-Public Use
  Company Number: FR-BAYER-2011-049933

PATIENT
  Age: 19 Year
  Sex: Female

DRUGS (2)
  1. LEVOTHYROXINE SODIUM [Concomitant]
     Indication: THYROIDECTOMY
  2. YAZ [Suspect]
     Indication: ORAL CONTRACEPTION
     Route: 048

REACTIONS (5)
  - METRORRHAGIA [None]
  - ABORTION SPONTANEOUS [None]
  - AMENORRHOEA [None]
  - PAIN [None]
  - PREGNANCY ON ORAL CONTRACEPTIVE [None]
